FAERS Safety Report 9370503 (Version 3)
Quarter: 2015Q1

REPORT INFORMATION
  Report Type: Spontaneous
  Country: US (occurrence: US)
  Receive Date: 20130626
  Receipt Date: 20150226
  Transmission Date: 20150721
  Serious: Yes (Hospitalization, Other)
  Sender: FDA-Public Use
  Company Number: US-GLAXOSMITHKLINE-A1028459A

PATIENT
  Age: 70 Year
  Sex: Female
  Weight: 66.21 kg

DRUGS (16)
  1. ETODOLAC. [Suspect]
     Active Substance: ETODOLAC
     Indication: PAIN
     Dosage: 1000 MG, QD
     Route: 048
  2. ZOLOFT [Concomitant]
     Active Substance: SERTRALINE HYDROCHLORIDE
  3. CALCIUM + VIT D [Concomitant]
     Active Substance: CALCIUM\VITAMIN D
  4. PRAVASTATIN [Concomitant]
     Active Substance: PRAVASTATIN\PRAVASTATIN SODIUM
  5. ALPRAZOLAM. [Concomitant]
     Active Substance: ALPRAZOLAM
  6. AMLODIPINE [Concomitant]
     Active Substance: AMLODIPINE BESYLATE
  7. OMEGA 3 [Concomitant]
     Active Substance: OMEGA-3 FATTY ACIDS
  8. LEVOTHYROXINE [Concomitant]
     Active Substance: LEVOTHYROXINE
  9. TYLENOL [Concomitant]
     Active Substance: ACETAMINOPHEN
  10. LAMICTAL [Suspect]
     Active Substance: LAMOTRIGINE
     Indication: BIPOLAR DISORDER
     Dosage: 200 MG
     Route: 048
     Dates: start: 2011, end: 201305
  11. HUMIRA [Suspect]
     Active Substance: ADALIMUMAB
     Indication: RHEUMATOID ARTHRITIS
     Dosage: 40 MG, EVERY 2 WEEKS
     Route: 065
     Dates: start: 2004
  12. MELOXICAM. [Suspect]
     Active Substance: MELOXICAM
     Indication: PAIN
     Dosage: 7.5 MG, QD
     Route: 065
  13. WELLBUTRIN SR [Concomitant]
     Active Substance: BUPROPION HYDROCHLORIDE
  14. ASPIRIN (BABY) [Concomitant]
  15. MELOXICAM. [Suspect]
     Active Substance: MELOXICAM
     Indication: INFLAMMATION
  16. METOPROLOL [Concomitant]
     Active Substance: METOPROLOL

REACTIONS (40)
  - Pulmonary fibrosis [Unknown]
  - Balance disorder [Unknown]
  - Fall [Unknown]
  - Gait disturbance [Unknown]
  - Peritonsillar abscess [Recovered/Resolved]
  - Blood cholesterol increased [Unknown]
  - Genital herpes [Unknown]
  - Hospitalisation [Unknown]
  - Ankle fracture [Unknown]
  - Somnolence [Unknown]
  - Pain in extremity [Unknown]
  - Tooth repair [Unknown]
  - Impaired healing [Unknown]
  - Fibromyalgia [Recovered/Resolved]
  - Pain [Unknown]
  - Neuralgia [Unknown]
  - Transient ischaemic attack [Unknown]
  - Neuropathy peripheral [Recovered/Resolved]
  - Cataract [Unknown]
  - Benign neoplasm [Unknown]
  - Tremor [Unknown]
  - Tooth extraction [Recovered/Resolved]
  - Hypoaesthesia [Unknown]
  - Jaw fracture [Unknown]
  - Inflammation [Unknown]
  - Coordination abnormal [Recovering/Resolving]
  - Aortic aneurysm [Unknown]
  - Pyrexia [Recovered/Resolved]
  - Pain in jaw [Unknown]
  - Bradycardia [Unknown]
  - Hypertension [Unknown]
  - Essential tremor [Unknown]
  - Fatigue [Unknown]
  - Asthenia [Unknown]
  - Sinus disorder [Unknown]
  - Walking aid user [Unknown]
  - Arthralgia [Recovered/Resolved]
  - Crepitations [Unknown]
  - Anxiety [Unknown]
  - Blood pressure increased [Recovered/Resolved]

NARRATIVE: CASE EVENT DATE: 2007
